FAERS Safety Report 5264005-3 (Version None)
Quarter: 2007Q1

REPORT INFORMATION
  Report Type: 
  Country: None (occurrence: None)
  Receive Date: 20070313
  Receipt Date: 20070306
  Transmission Date: 20070707
  Serious: Yes (Disabling, Other)
  Sender: FDA-Public Use
  Company Number: GB-ALLERGAN-0702399US

PATIENT
  Age: 46 Year
  Sex: Female

DRUGS (6)
  1. DYSPORT [Suspect]
     Indication: SKIN WRINKLING
     Dosage: 120 UNITS, SINGLE
     Route: 030
     Dates: start: 20060328, end: 20060328
  2. ALENDRONIC ACID [Concomitant]
     Indication: DRUG USE FOR UNKNOWN INDICATION
     Dates: start: 20060303
  3. CALCIUM CARBONATE [Concomitant]
     Indication: DRUG USE FOR UNKNOWN INDICATION
     Dates: start: 20060324
  4. HUMULIN L [Concomitant]
     Indication: DRUG USE FOR UNKNOWN INDICATION
     Dates: start: 19890101
  5. HUMULIN S [Concomitant]
     Indication: DRUG USE FOR UNKNOWN INDICATION
     Dates: start: 19890101
  6. LANTUS [Concomitant]
     Indication: DRUG USE FOR UNKNOWN INDICATION
     Dates: start: 19890101

REACTIONS (30)
  - ABDOMINAL PAIN UPPER [None]
  - BALANCE DISORDER [None]
  - BLISTER [None]
  - CHROMATURIA [None]
  - DIARRHOEA [None]
  - DIZZINESS [None]
  - DRY MOUTH [None]
  - EYELID PTOSIS [None]
  - FACIAL PARESIS [None]
  - FOOD INTOLERANCE [None]
  - GASTRIC DISORDER [None]
  - HEADACHE [None]
  - HYPERSENSITIVITY [None]
  - HYPOAESTHESIA [None]
  - INFLUENZA LIKE ILLNESS [None]
  - INJECTION SITE PAIN [None]
  - MALAISE [None]
  - MOTOR DYSFUNCTION [None]
  - MUSCLE TWITCHING [None]
  - MYALGIA [None]
  - NAUSEA [None]
  - PALPITATIONS [None]
  - PARAESTHESIA [None]
  - RASH ERYTHEMATOUS [None]
  - RASH PUSTULAR [None]
  - TINNITUS [None]
  - TREMOR [None]
  - URTICARIA [None]
  - URTICARIA LOCALISED [None]
  - VISION BLURRED [None]
